FAERS Safety Report 6097421-0 (Version None)
Quarter: 2009Q1

REPORT INFORMATION
  Report Type: 
  Country: None (occurrence: None)
  Receive Date: 20090227
  Receipt Date: 20080408
  Transmission Date: 20090719
  Serious: No
  Sender: FDA-Public Use
  Company Number: A0721650A

PATIENT
  Age: 30 Year
  Sex: Female

DRUGS (2)
  1. IMITREX [Suspect]
     Indication: HEADACHE
     Dosage: 6MG TWICE PER DAY
     Route: 058
     Dates: start: 20071001, end: 20080401
  2. HEART MEDICATION [Concomitant]

REACTIONS (2)
  - NAUSEA [None]
  - PRODUCT QUALITY ISSUE [None]
